FAERS Safety Report 8608367 (Version 4)
Quarter: 2014Q2

REPORT INFORMATION
  Report Type: Report from Study
  Country: AU (occurrence: AU)
  Receive Date: 20120611
  Receipt Date: 20140527
  Transmission Date: 20141212
  Serious: Yes (Other)
  Sender: FDA-Public Use
  Company Number: AU-JNJFOC-20120517615

PATIENT
  Sex: Female

DRUGS (14)
  1. STELARA [Suspect]
     Indication: PSORIASIS
     Route: 058
     Dates: start: 20101217
  2. STELARA [Suspect]
     Indication: PSORIASIS
     Route: 058
     Dates: start: 20120606
  3. STELARA [Suspect]
     Indication: PSORIASIS
     Route: 058
     Dates: start: 20120221
  4. STELARA [Suspect]
     Indication: PSORIASIS
     Route: 058
     Dates: start: 20111129
  5. STELARA [Suspect]
     Indication: PSORIASIS
     Route: 058
     Dates: start: 20110912
  6. STELARA [Suspect]
     Indication: PSORIASIS
     Route: 058
     Dates: start: 20110619
  7. STELARA [Suspect]
     Indication: PSORIASIS
     Route: 058
     Dates: start: 20110311
  8. STELARA [Suspect]
     Indication: PSORIASIS
     Route: 058
     Dates: start: 20101120
  9. COLGOUT [Concomitant]
     Route: 065
  10. NEXIUM [Concomitant]
     Route: 065
  11. MICARDIS [Concomitant]
     Route: 065
  12. CLARYTINE [Concomitant]
     Route: 065
  13. METHOTREXATE [Concomitant]
     Route: 065
  14. MOBIC [Concomitant]
     Route: 065

REACTIONS (10)
  - Disturbance in attention [Unknown]
  - Intraocular pressure increased [Unknown]
  - Dizziness [Unknown]
  - Vertigo [Not Recovered/Not Resolved]
  - Depression [Recovered/Resolved]
  - Sinusitis [Unknown]
  - Influenza [Unknown]
  - Tooth infection [Unknown]
  - Psoriasis [Not Recovered/Not Resolved]
  - Drug ineffective [Unknown]
